FAERS Safety Report 9837189 (Version 1)
Quarter: 2013Q4

REPORT INFORMATION
  Report Type: Spontaneous
  Country: US (occurrence: None)
  Receive Date: 20131205
  Receipt Date: 20131205
  Transmission Date: 20140711
  Serious: Yes (Other)
  Sender: FDA-Public Use
  Company Number: 163-POMAL-13083828

PATIENT
  Sex: Male
  Weight: 107.7 kg

DRUGS (4)
  1. POMALYST (POMALIDOMIDE) (2 MILLIGRAM, CAPSULES) [Suspect]
     Indication: PLASMA CELL MYELOMA
     Dosage: 2 MG, 20 IN 20 D PO
     Route: 048
     Dates: start: 20130723
  2. DEXAMETHASONE (DEXAMETHASONE) [Suspect]
     Indication: PLASMA CELL MYELOMA
     Dosage: 2 MG, 20 IN 20 D, PO
     Dates: start: 20130723
  3. SILVER SALTS (SILVER) [Concomitant]
  4. BABY ASPIRIN(ACETYLSALICYLIC ACID) [Concomitant]

REACTIONS (3)
  - Anaemia [None]
  - Oedema peripheral [None]
  - Blood creatinine increased [None]
